FAERS Safety Report 8957493 (Version 1)
Quarter: 2012Q4

REPORT INFORMATION
  Report Type: Spontaneous
  Country: US (occurrence: None)
  Receive Date: 20121205
  Receipt Date: 20121205
  Transmission Date: 20130627
  Serious: Yes (Other)
  Sender: FDA-Public Use
  Company Number: None

PATIENT
  Age: 56 Year
  Sex: Male
  Weight: 108.86 kg

DRUGS (1)
  1. XARELTO [Suspect]
     Indication: POSTOPERATIVE CARE
     Route: 048
     Dates: start: 20121128, end: 20121202

REACTIONS (2)
  - Hot flush [None]
  - Hyperhidrosis [None]
